FAERS Safety Report 18957585 (Version 1)
Quarter: 2021Q1

REPORT INFORMATION
  Report Type: Spontaneous
  Country: US (occurrence: US)
  Receive Date: 20210302
  Receipt Date: 20210302
  Transmission Date: 20210420
  Serious: Yes (Other)
  Sender: FDA-Public Use
  Company Number: US-ALLERGAN-2035303US

PATIENT
  Sex: Female

DRUGS (2)
  1. IBUPROFEN. [Concomitant]
     Active Substance: IBUPROFEN
     Dosage: 800 MG, PRN
     Route: 048
  2. NORCO [Suspect]
     Active Substance: ACETAMINOPHEN\HYDROCODONE BITARTRATE
     Indication: BACK PAIN
     Dosage: 9 DF, QD
     Route: 048
     Dates: start: 2005, end: 2006

REACTIONS (6)
  - Vomiting [Recovered/Resolved]
  - Imprisonment [Unknown]
  - Pregnancy [Unknown]
  - Tremor [Recovered/Resolved]
  - Chills [Recovered/Resolved]
  - Dependence [Recovered/Resolved]

NARRATIVE: CASE EVENT DATE: 2006
